FAERS Safety Report 25434262 (Version 1)
Quarter: 2025Q2

REPORT INFORMATION
  Report Type: Spontaneous
  Country: US (occurrence: US)
  Receive Date: 20250613
  Receipt Date: 20250613
  Transmission Date: 20250717
  Serious: Yes (Life-Threatening, Hospitalization, Other)
  Sender: MYLAN
  Company Number: US-MYLANLABS-2025M1049055

PATIENT
  Age: 36 Year
  Sex: Male

DRUGS (8)
  1. ARGATROBAN [Suspect]
     Active Substance: ARGATROBAN
     Indication: Heparin-induced thrombocytopenia
  2. ARGATROBAN [Suspect]
     Active Substance: ARGATROBAN
     Route: 065
  3. ARGATROBAN [Suspect]
     Active Substance: ARGATROBAN
     Route: 065
  4. ARGATROBAN [Suspect]
     Active Substance: ARGATROBAN
  5. BIVALIRUDIN [Suspect]
     Active Substance: BIVALIRUDIN
     Indication: Subclavian vein thrombosis
  6. BIVALIRUDIN [Suspect]
     Active Substance: BIVALIRUDIN
     Indication: Jugular vein thrombosis
     Route: 065
  7. BIVALIRUDIN [Suspect]
     Active Substance: BIVALIRUDIN
     Route: 065
  8. BIVALIRUDIN [Suspect]
     Active Substance: BIVALIRUDIN

REACTIONS (2)
  - Gastrointestinal haemorrhage [Unknown]
  - Treatment failure [Unknown]
